FAERS Safety Report 16088199 (Version 3)
Quarter: 2020Q2

REPORT INFORMATION
  Report Type: Report from Study
  Country: DE (occurrence: DE)
  Receive Date: 20190319
  Receipt Date: 20200409
  Transmission Date: 20200713
  Serious: Yes (Hospitalization)
  Sender: FDA-Public Use
  Company Number: DE-ROCHE-2278733

PATIENT
  Age: 42 Year
  Sex: Female
  Weight: 67.5 kg

DRUGS (25)
  1. LOPERAMIDE [Concomitant]
     Active Substance: LOPERAMIDE
     Route: 048
     Dates: start: 20181204
  2. PEGFILGRASTIM [Concomitant]
     Active Substance: PEGFILGRASTIM
     Route: 058
     Dates: start: 20181205, end: 20190202
  3. CIPROFLOXACIN. [Concomitant]
     Active Substance: CIPROFLOXACIN
     Route: 042
     Dates: start: 20190207, end: 20190211
  4. TRASTUZUMAB. [Suspect]
     Active Substance: TRASTUZUMAB
     Dosage: MAINTAINANCE DOSE
     Route: 042
  5. DOXORUBICIN [Suspect]
     Active Substance: DOXORUBICIN
     Dosage: DOXORUBICIN 60 MG/M2 WILL BE ADMINISTERED IV ON DAY 1 OF EACH CYCLE OF TREATMENT (AS PART OF EITHER
     Route: 042
     Dates: start: 20181204
  6. PANTOZOL [Concomitant]
     Active Substance: PANTOPRAZOLE SODIUM
     Indication: PROPHYLAXIS
     Route: 048
     Dates: start: 20181204
  7. METOCLOPRAMID [METOCLOPRAMIDE] [Concomitant]
     Active Substance: METOCLOPRAMIDE
     Route: 048
     Dates: start: 20181204
  8. CIPROFLOXACIN. [Concomitant]
     Active Substance: CIPROFLOXACIN
     Indication: FEBRILE NEUTROPENIA
     Route: 048
     Dates: start: 20190207, end: 20190207
  9. PACLITAXEL. [Suspect]
     Active Substance: PACLITAXEL
     Dosage: ON 01/MAR/2019, RECEIVED 140.8 MG MOST RECENT DOSE AT 13.40?PACLITAXEL 80 MG/M2 WILL BE ADMINISTERED
     Route: 042
     Dates: start: 20190301
  10. MESNA. [Concomitant]
     Active Substance: MESNA
     Route: 048
     Dates: start: 20181204, end: 20190201
  11. CLEMASTINE [Concomitant]
     Active Substance: CLEMASTINE
     Route: 042
     Dates: start: 20190301, end: 20190405
  12. RANITIDINE. [Concomitant]
     Active Substance: RANITIDINE
     Route: 042
     Dates: start: 20190301, end: 20190405
  13. EMSER [EMSER SALT] [Concomitant]
     Indication: COUGH
     Route: 055
     Dates: start: 20190208, end: 20190212
  14. AKYNZEO [Concomitant]
     Active Substance: NETUPITANT\PALONOSETRON HYDROCHLORIDE
     Route: 048
     Dates: start: 20181204, end: 20190201
  15. PERTUZUMAB. [Suspect]
     Active Substance: PERTUZUMAB
     Dosage: LOADING DOSE?PERTUZUMAB WILL BE ADMINISTERED AS A FIXED NON-WEIGHT-BASED DOSE OF 840-MG IV LOADING D
     Route: 042
     Dates: start: 20190301
  16. L-THYROXIN [LEVOTHYROXINE SODIUM] [Concomitant]
     Active Substance: LEVOTHYROXINE SODIUM
     Indication: HYPOTHYROIDISM
     Route: 048
     Dates: start: 20181203
  17. DEXAMETHASON [DEXAMETHASONE] [Concomitant]
     Active Substance: DEXAMETHASONE
     Route: 048
     Dates: start: 20181204, end: 20190405
  18. TRASTUZUMAB. [Suspect]
     Active Substance: TRASTUZUMAB
     Dosage: LOADING DOSE (560 MG)?TRASTUZUMAB WILL BE ADMINISTERED AS AN 8-MG/KG IV LOADING DOSE
     Route: 042
     Dates: start: 20190301
  19. PERTUZUMAB. [Suspect]
     Active Substance: PERTUZUMAB
     Dosage: MAINTAINANCE DOSE
     Route: 042
  20. CYCLOPHOSPHAMIDE. [Suspect]
     Active Substance: CYCLOPHOSPHAMIDE
     Dosage: ON 01/FEB/2019, RECEIVED 844.4 MG MOST RECENT DOSE OF CYCLOPHOSAMIDE?CYCLOPHOSPHAMIDE 600 MG/M2 WILL
     Route: 042
     Dates: start: 20181204
  21. MESNA. [Concomitant]
     Active Substance: MESNA
     Indication: PROPHYLAXIS
     Route: 042
     Dates: start: 20181204, end: 20190201
  22. AMOXICLAV [Concomitant]
     Active Substance: AMOXICILLIN\CLAVULANATE POTASSIUM
     Indication: FEBRILE NEUTROPENIA
     Route: 048
     Dates: start: 20190207, end: 20190207
  23. ACETYLCYSTEIN [Concomitant]
     Active Substance: ACETYLCYSTEINE
     Indication: COUGH
     Route: 048
     Dates: start: 20190208, end: 20200212
  24. UNACID [AMPICILLIN SODIUM;SULBACTAM SODIUM] [Concomitant]
     Active Substance: AMPICILLIN SODIUM\SULBACTAM SODIUM
     Indication: FEBRILE NEUTROPENIA
     Route: 042
     Dates: start: 20190207, end: 20190211
  25. PARACODEINE [Concomitant]
     Active Substance: ACETAMINOPHEN\CODEINE PHOSPHATE
     Indication: COUGH
     Route: 048
     Dates: start: 20190209, end: 20190211

REACTIONS (1)
  - Pulmonary embolism [Recovered/Resolved]

NARRATIVE: CASE EVENT DATE: 20190301
